FAERS Safety Report 4748454-5 (Version None)
Quarter: 2005Q3

REPORT INFORMATION
  Report Type: 
  Country: None (occurrence: None)
  Receive Date: 20050817
  Receipt Date: 20050513
  Transmission Date: 20060218
  Serious: Yes (Hospitalization)
  Sender: FDA-Public Use
  Company Number: PHEH2005US01972

PATIENT
  Age: 83 Year
  Sex: Male

DRUGS (13)
  1. GLEEVEC [Suspect]
     Dosage: 600 MG,QD,ORAL
     Route: 048
     Dates: start: 20041110, end: 20050115
  2. ALLOPURINOL [Concomitant]
  3. FOSAMAX [Concomitant]
  4. LEVOTHYROXINE SODIUM [Concomitant]
  5. PROTONIX [Concomitant]
  6. NADOLOL [Concomitant]
  7. ASPIRIN [Concomitant]
  8. ERYTHROPOIETIN(ERYTHROPOIETIN) [Concomitant]
  9. ATORVASTATIN CALCIUM [Concomitant]
  10. Z-BEC/USA/(MINERALS NOS,VITAMINS NOS) [Concomitant]
  11. VITAMIN B12 [Concomitant]
  12. MAXZIDE [Concomitant]
  13. LISINOPRIL [Concomitant]

REACTIONS (4)
  - BLOOD CREATININE INCREASED [None]
  - BLOOD UREA INCREASED [None]
  - RENAL FAILURE ACUTE [None]
  - ULTRASOUND KIDNEY ABNORMAL [None]
